FAERS Safety Report 25891123 (Version 1)
Quarter: 2025Q4

REPORT INFORMATION
  Report Type: Spontaneous
  Country: US (occurrence: None)
  Receive Date: 20251007
  Receipt Date: 20251007
  Transmission Date: 20260117
  Serious: Yes (unspecified)
  Sender: FDA-CTU
  Company Number: None

PATIENT
  Age: 75 Year
  Sex: Male
  Weight: 70.3 kg

DRUGS (2)
  1. GAMUNEX-C [Suspect]
     Active Substance: HUMAN IMMUNOGLOBULIN G
     Dosage: 40 G GRM(S) EVEY 28 DAYS INTRAVENOUS?
     Route: 042
  2. GAMUNEX-C [Suspect]
     Active Substance: HUMAN IMMUNOGLOBULIN G
     Dosage: 10 G GRM(S) VERY 28 DAYS INTRAVENUS
     Route: 042

REACTIONS (3)
  - Urticaria [None]
  - Infusion related reaction [None]
  - Recalled product administered [None]

NARRATIVE: CASE EVENT DATE: 20250916
